FAERS Safety Report 6972973-4 (Version None)
Quarter: 2010Q3

REPORT INFORMATION
  Report Type: 
  Country: None (occurrence: None)
  Receive Date: 20100909
  Receipt Date: 20100803
  Transmission Date: 20110219
  Serious: Yes (Hospitalization)
  Sender: FDA-Public Use
  Company Number: US-KINGPHARMUSA00001-K201000973

PATIENT
  Age: 55 Year
  Sex: Female

DRUGS (1)
  1. EMBEDA [Suspect]
     Dosage: 60 MG, QD
     Dates: start: 20100731

REACTIONS (3)
  - ABDOMINAL PAIN [None]
  - CONSTIPATION [None]
  - MUSCLE SPASMS [None]
